FAERS Safety Report 8078422-X (Version None)
Quarter: 2012Q1

REPORT INFORMATION
  Report Type: 
  Country: None (occurrence: None)
  Receive Date: 20120123
  Receipt Date: 20120110
  Transmission Date: 20120608
  Serious: Yes (Hospitalization)
  Sender: FDA-Public Use
  Company Number: UTC-014432

PATIENT
  Age: 48 Year
  Sex: Female
  Weight: 106 kg

DRUGS (6)
  1. TRACLEER [Concomitant]
  2. LETAIRIS [Suspect]
  3. REVATIO [Concomitant]
  4. DIURETICS (DIURETICS) [Concomitant]
  5. COUMADIN [Suspect]
  6. TYVASO [Suspect]
     Indication: PULMONARY ARTERIAL HYPERTENSION
     Dosage: 216 MCG (54 MCG,4 IN 1 D),INHALATION
     Route: 055
     Dates: start: 20110729

REACTIONS (3)
  - HAEMOPTYSIS [None]
  - PULMONARY HAEMORRHAGE [None]
  - EPISTAXIS [None]
